FAERS Safety Report 4581894-6 (Version None)
Quarter: 2005Q1

REPORT INFORMATION
  Report Type: 
  Country: None (occurrence: None)
  Receive Date: 20050214
  Receipt Date: 20040331
  Transmission Date: 20050727
  Serious: Yes (Other)
  Sender: FDA-Public Use
  Company Number: US-GLAXOSMITHKLINE-A0505392A

PATIENT
  Age: 18 Year
  Sex: Male
  Weight: 50 kg

DRUGS (2)
  1. LAMICTAL [Suspect]
     Indication: EPILEPSY
     Route: 048
  2. BACTRIM [Concomitant]

REACTIONS (1)
  - CONVULSION [None]
